FAERS Safety Report 5019248-0 (Version None)
Quarter: 2006Q2

REPORT INFORMATION
  Report Type: 
  Country: None (occurrence: None)
  Receive Date: 20060531
  Receipt Date: 20060518
  Transmission Date: 20061013
  Serious: Yes (Death)
  Sender: FDA-Public Use
  Company Number: 2006EU001591

PATIENT
  Age: 55 Year
  Sex: Male

DRUGS (3)
  1. PROGRAF [Suspect]
     Indication: LIVER TRANSPLANT
     Dosage: 0.5 MG, BID, ORAL
     Route: 048
     Dates: start: 19910115, end: 20060403
  2. NEO-MERCAZOLE TAB [Suspect]
     Indication: LIVER TRANSPLANT
     Dosage: 20 MG, TID, ORAL
     Route: 048
     Dates: start: 20051115, end: 20060331
  3. CELLCEPT [Suspect]
     Indication: LIVER TRANSPLANT
     Dosage: 250 MG, BID, ORAL
     Route: 048
     Dates: start: 19910115, end: 20060403

REACTIONS (13)
  - AGRANULOCYTOSIS [None]
  - BACTERIAL INFECTION [None]
  - DIARRHOEA [None]
  - DISTURBANCE IN ATTENTION [None]
  - DRUG RESISTANCE [None]
  - HAEMOGLOBIN DECREASED [None]
  - HEART RATE INCREASED [None]
  - HEPATIC FAILURE [None]
  - LOSS OF CONSCIOUSNESS [None]
  - PLATELET COUNT DECREASED [None]
  - RENAL FAILURE ACUTE [None]
  - SEPTIC SHOCK [None]
  - STAPHYLOCOCCAL INFECTION [None]
